FAERS Safety Report 10045446 (Version 4)
Quarter: 2014Q2

REPORT INFORMATION
  Report Type: Report from Study
  Country: GT (occurrence: GT)
  Receive Date: 20140328
  Receipt Date: 20140512
  Transmission Date: 20141212
  Serious: Yes (Other)
  Sender: FDA-Public Use
  Company Number: GT-ABBVIE-14P-069-1206909-00

PATIENT
  Sex: Female

DRUGS (3)
  1. HUMIRA [Suspect]
     Indication: ANKYLOSING SPONDYLITIS
     Route: 058
     Dates: start: 20140214, end: 20140326
  2. TELMISARTAN [Concomitant]
     Indication: HYPERTENSION
  3. METOPROLOL [Concomitant]
     Indication: HYPERTENSION

REACTIONS (3)
  - Pulmonary thrombosis [Recovering/Resolving]
  - Dysphonia [Recovered/Resolved]
  - Nasopharyngitis [Recovered/Resolved]
